FAERS Safety Report 8001845-1 (Version None)
Quarter: 2011Q4

REPORT INFORMATION
  Report Type: 
  Country: None (occurrence: None)
  Receive Date: 20111220
  Receipt Date: 20111205
  Transmission Date: 20120403
  Serious: Yes (Other)
  Sender: FDA-Public Use
  Company Number: CIP11003281

PATIENT
  Sex: Female

DRUGS (3)
  1. FOSAMAX [Suspect]
     Indication: OSTEOPOROSIS
     Dosage: DOSAGE/FREQUENCY UNKNOWN, ORAL
     Route: 048
     Dates: start: 20110101, end: 20110101
  2. ACTONEL [Suspect]
     Indication: OSTEOPOROSIS
     Dosage: DOSAGE/FREQUENCY UNKNOWN, ORAL
     Route: 048
     Dates: start: 20110101, end: 20110101
  3. BONIVA [Suspect]
     Indication: OSTEOPOROSIS
     Dosage: DOSAGE/FREQUENCY UNKNOWN, ORAL
     Route: 048
     Dates: start: 20110101, end: 20110101

REACTIONS (3)
  - PAIN IN EXTREMITY [None]
  - FEMUR FRACTURE [None]
  - ARTHRALGIA [None]
